FAERS Safety Report 6879315-3 (Version None)
Quarter: 2010Q3

REPORT INFORMATION
  Report Type: 
  Country: None (occurrence: None)
  Receive Date: 20100728
  Receipt Date: 20100715
  Transmission Date: 20110219
  Serious: Yes (Other)
  Sender: FDA-Public Use
  Company Number: JP-SANOFI-AVENTIS-2010SA042873

PATIENT
  Age: 69 Year
  Sex: Male
  Weight: 66 kg

DRUGS (12)
  1. OXALIPLATIN [Suspect]
     Indication: COLON CANCER
     Route: 041
     Dates: start: 20090518, end: 20090518
  2. OXALIPLATIN [Suspect]
     Route: 041
     Dates: start: 20100413, end: 20100413
  3. CALCIUM LEVOFOLINATE [Concomitant]
     Indication: COLON CANCER
     Route: 041
     Dates: start: 20090518, end: 20090518
  4. CALCIUM LEVOFOLINATE [Concomitant]
     Route: 041
     Dates: start: 20100413, end: 20100413
  5. FLUOROURACIL [Concomitant]
     Indication: COLON CANCER
     Route: 040
     Dates: start: 20090518, end: 20090518
  6. FLUOROURACIL [Concomitant]
     Route: 041
     Dates: start: 20090518, end: 20090519
  7. FLUOROURACIL [Concomitant]
     Route: 040
  8. FLUOROURACIL [Concomitant]
     Route: 041
  9. GRANISETRON HYDROCHLORIDE [Concomitant]
     Indication: PREMEDICATION
     Route: 041
     Dates: start: 20090518, end: 20100413
  10. DEXAMETHASONE SODIUM PHOSPHATE [Concomitant]
     Indication: PREMEDICATION
     Route: 041
     Dates: start: 20090518, end: 20100413
  11. AMLODIPINE BESYLATE [Concomitant]
     Route: 048
  12. DAIKENTYUTO [Concomitant]
     Route: 048

REACTIONS (1)
  - SHOCK [None]
